FAERS Safety Report 10079865 (Version 1)
Quarter: 2014Q2

REPORT INFORMATION
  Report Type: Spontaneous
  Country: DE (occurrence: DE)
  Receive Date: 20140415
  Receipt Date: 20140415
  Transmission Date: 20141212
  Serious: Yes (Death, Hospitalization)
  Sender: FDA-Public Use
  Company Number: DE-JNJFOC-20140409397

PATIENT
  Age: 47 Year
  Sex: Female

DRUGS (2)
  1. REMICADE [Suspect]
     Indication: CROHN^S DISEASE
     Route: 042
     Dates: start: 201308, end: 20131202
  2. REMICADE [Suspect]
     Indication: CROHN^S DISEASE
     Route: 042
     Dates: start: 201401

REACTIONS (11)
  - Disseminated tuberculosis [Fatal]
  - Cardiomyopathy [Fatal]
  - Relapsing fever [Unknown]
  - Bacterial sepsis [Fatal]
  - Multi-organ failure [Fatal]
  - Pneumonia [Fatal]
  - Respiratory failure [Fatal]
  - Septic shock [Fatal]
  - Weight decreased [Unknown]
  - General physical condition abnormal [Unknown]
  - Coagulopathy [Fatal]
